FAERS Safety Report 8085448-9 (Version None)
Quarter: 2012Q1

REPORT INFORMATION
  Report Type: 
  Country: None (occurrence: None)
  Receive Date: 20120128
  Receipt Date: 20110510
  Transmission Date: 20120608
  Serious: No
  Sender: FDA-Public Use
  Company Number: US-ABBOTT-11P-163-0705267-00

PATIENT
  Sex: Female
  Weight: 59.02 kg

DRUGS (2)
  1. HUMIRA [Suspect]
     Indication: CROHN'S DISEASE
     Dates: start: 20090101, end: 20101201
  2. HUMIRA [Suspect]
     Dates: start: 20101201

REACTIONS (4)
  - INCORRECT DOSE ADMINISTERED [None]
  - DIARRHOEA [None]
  - DEVICE MALFUNCTION [None]
  - INJECTION SITE PAIN [None]
